FAERS Safety Report 6189361-3 (Version None)
Quarter: 2009Q2

REPORT INFORMATION
  Report Type: 
  Country: None (occurrence: None)
  Receive Date: 20090512
  Receipt Date: 20090504
  Transmission Date: 20091009
  Serious: Yes (Death)
  Sender: FDA-Public Use
  Company Number: SPV1-2009-00869

PATIENT
  Age: 73 Year
  Sex: Male
  Weight: 72.1 kg

DRUGS (1)
  1. FOSRENOL [Suspect]
     Indication: RENAL FAILURE
     Dosage: ORAL
     Route: 048
     Dates: start: 20090101, end: 20090425

REACTIONS (3)
  - ASTHENIA [None]
  - CONCOMITANT DISEASE AGGRAVATED [None]
  - RENAL FAILURE [None]
